FAERS Safety Report 8937966 (Version 1)
Quarter: 2012Q4

REPORT INFORMATION
  Report Type: Spontaneous
  Country: US (occurrence: None)
  Receive Date: 20121123
  Receipt Date: 20121123
  Transmission Date: 20130627
  Serious: Yes (Other)
  Sender: FDA-Public Use
  Company Number: 2012P1064945

PATIENT
  Age: 66 Year
  Sex: Female

DRUGS (14)
  1. DILTIAZEM (NO PREF. NAME) [Suspect]
     Indication: HYPERTENSION
  2. ATENOLOL [Concomitant]
     Indication: HYPERTENSION
  3. GABAPENTIN [Concomitant]
  4. NISOLDIPINE [Concomitant]
  5. CARBIDOPA-LEVODOPA [Concomitant]
  6. BUPROPION [Concomitant]
  7. TRAZODONE [Concomitant]
  8. CITALOPRAM [Concomitant]
  9. DULOEXTINE [Concomitant]
  10. ZIPRASIDONE [Concomitant]
  11. OXYCODONE-ACETAMINOPHEN [Concomitant]
  12. MULTIVITAMINS [Concomitant]
  13. OMEGA-3 FISH OIL [Concomitant]
  14. CALCIUM SUPPLEMENT [Concomitant]

REACTIONS (1)
  - Cutaneous lupus erythematosus [None]
